FAERS Safety Report 14173173 (Version 3)
Quarter: 2017Q4

REPORT INFORMATION
  Report Type: Spontaneous
  Country: JP (occurrence: JP)
  Receive Date: 20171109
  Receipt Date: 20171215
  Transmission Date: 20180321
  Serious: Yes (Life-Threatening, Hospitalization, Other)
  Sender: FDA-Public Use
  Company Number: JP-SUN PHARMACEUTICAL INDUSTRIES LTD-2017R1-154064

PATIENT
  Age: 21 Year
  Sex: Male

DRUGS (1)
  1. AMITRIPTYLINE [Suspect]
     Active Substance: AMITRIPTYLINE
     Indication: PRODUCT USED FOR UNKNOWN INDICATION
     Route: 048

REACTIONS (9)
  - Arrhythmia [Recovered/Resolved]
  - Abdominal compartment syndrome [Recovering/Resolving]
  - Coma [Not Recovered/Not Resolved]
  - Ventricular fibrillation [Recovered/Resolved]
  - Brain injury [Unknown]
  - Toxicity to various agents [Unknown]
  - Intestinal obstruction [Recovering/Resolving]
  - Epilepsy [Recovering/Resolving]
  - Ventricular tachycardia [Recovered/Resolved]
